FAERS Safety Report 10904728 (Version 1)
Quarter: 2015Q1

REPORT INFORMATION
  Report Type: Spontaneous
  Country: FR (occurrence: FR)
  Receive Date: 20150311
  Receipt Date: 20150311
  Transmission Date: 20150721
  Serious: Yes (Hospitalization)
  Sender: FDA-Public Use
  Company Number: FR-B.I. PHARMACEUTICALS,INC./RIDGEFIELD-2015-BI-12062FF

PATIENT
  Age: 13 Year
  Sex: Male

DRUGS (5)
  1. VENTOLINE [Suspect]
     Active Substance: ALBUTEROL
     Indication: ASTHMATIC CRISIS
     Route: 042
     Dates: start: 20150113, end: 20150114
  2. VENTOLINE [Suspect]
     Active Substance: ALBUTEROL
     Indication: ASTHMATIC CRISIS
     Route: 055
     Dates: start: 20150113
  3. SOLUPRED [Suspect]
     Active Substance: PREDNISOLONE
     Indication: ASTHMATIC CRISIS
     Dosage: 60 MG
     Route: 048
     Dates: start: 20150113
  4. ATROVENT [Suspect]
     Active Substance: IPRATROPIUM BROMIDE
     Indication: ASTHMATIC CRISIS
     Route: 055
     Dates: start: 20150113, end: 20150115
  5. DOLIPRANE [Concomitant]
     Active Substance: ACETAMINOPHEN
     Indication: PRODUCT USED FOR UNKNOWN INDICATION
     Dosage: 4000 MG
     Route: 048
     Dates: start: 20150113

REACTIONS (5)
  - Chest pain [Recovered/Resolved]
  - N-terminal prohormone brain natriuretic peptide increased [Not Recovered/Not Resolved]
  - Tachycardia [Not Recovered/Not Resolved]
  - Troponin increased [Not Recovered/Not Resolved]
  - Electrocardiogram ST segment elevation [Not Recovered/Not Resolved]

NARRATIVE: CASE EVENT DATE: 20150113
